FAERS Safety Report 7799356-1 (Version None)
Quarter: 2011Q4

REPORT INFORMATION
  Report Type: 
  Country: None (occurrence: None)
  Receive Date: 20111006
  Receipt Date: 20040331
  Transmission Date: 20120403
  Serious: Yes (Other)
  Sender: FDA-Public Use
  Company Number: PHBS2004BR04500

PATIENT
  Sex: Female
  Weight: 176 kg

DRUGS (2)
  1. TEGRETOL [Suspect]
     Indication: AMNESIA
     Dosage: ONE TABLET AT NIGHT
     Route: 048
     Dates: start: 20040316
  2. DIAZEPAM [Concomitant]
     Indication: ANXIETY
     Dosage: 10 MG, QD
     Route: 048
     Dates: start: 20020101

REACTIONS (5)
  - HEAD DISCOMFORT [None]
  - FALL [None]
  - DIZZINESS [None]
  - TINNITUS [None]
  - CEREBRAL ISCHAEMIA [None]
